FAERS Safety Report 4889696-8 (Version None)
Quarter: 2006Q1

REPORT INFORMATION
  Report Type: 
  Country: None (occurrence: None)
  Receive Date: 20060120
  Receipt Date: 20051220
  Transmission Date: 20060701
  Serious: Yes (Hospitalization)
  Sender: FDA-Public Use
  Company Number: 220547

PATIENT
  Age: 62 Year
  Sex: Female

DRUGS (5)
  1. HERCEPTIN [Suspect]
     Indication: BREAST CANCER METASTATIC
     Dosage: 212 MG, UNK; INTRAVENOUS
     Route: 042
     Dates: start: 20050927
  2. HERCEPTIN [Suspect]
     Indication: BREAST CANCER METASTATIC
     Dosage: 106 MG, UNK, IV DRIP
     Route: 041
     Dates: start: 20051001, end: 20051201
  3. HERCEPTIN [Suspect]
     Indication: BREAST CANCER METASTATIC
     Dosage: 4 MG/KG, UNK, UNK
     Dates: start: 20051202
  4. DOCETAXEL (DOCETAXEL) [Suspect]
     Indication: BREAST CANCER METASTATIC
     Dosage: 92 MG, QD; INTRAVENOUS
     Route: 042
     Dates: start: 20051124
  5. VOLTAREN [Concomitant]

REACTIONS (20)
  - ANAEMIA [None]
  - ANOREXIA [None]
  - BLOOD ALKALINE PHOSPHATASE INCREASED [None]
  - BLOOD LACTATE DEHYDROGENASE INCREASED [None]
  - BLOOD POTASSIUM INCREASED [None]
  - BLOOD UREA INCREASED [None]
  - CHEST DISCOMFORT [None]
  - DIZZINESS [None]
  - DYSGEUSIA [None]
  - EPISTAXIS [None]
  - GAIT DISTURBANCE [None]
  - HAEMATEMESIS [None]
  - HOT FLUSH [None]
  - MALIGNANT NEOPLASM PROGRESSION [None]
  - METASTASES TO BONE [None]
  - NAUSEA [None]
  - NEUTROPHIL COUNT DECREASED [None]
  - RASH [None]
  - SHOULDER PAIN [None]
  - WHITE BLOOD CELL COUNT DECREASED [None]
